FAERS Safety Report 25493375 (Version 1)
Quarter: 2025Q2

REPORT INFORMATION
  Report Type: Other
  Country: GB (occurrence: GB)
  Receive Date: 20250630
  Receipt Date: 20250630
  Transmission Date: 20250716
  Serious: Yes (Hospitalization, Disabling, Other)
  Sender: MACLEODS
  Company Number: GB-CHEPLA-C20203700_01

PATIENT

DRUGS (21)
  1. ACYCLOVIR [Suspect]
     Active Substance: ACYCLOVIR
     Indication: Evidence based treatment
     Route: 042
  2. LACOSAMIDE [Suspect]
     Active Substance: LACOSAMIDE
     Indication: Status epilepticus
     Route: 065
  3. CEFTRIAXONE [Suspect]
     Active Substance: CEFTRIAXONE
     Indication: Evidence based treatment
     Route: 042
  4. LEVETIRACETAM [Suspect]
     Active Substance: LEVETIRACETAM
     Indication: Status epilepticus
     Route: 065
  5. METHYLPREDNISOLONE [Suspect]
     Active Substance: METHYLPREDNISOLONE
     Indication: Product used for unknown indication
     Dosage: 1 GRAM, ONCE A DAY,TWO SEPARATE PULSES
     Route: 042
  6. METHYLPREDNISOLONE [Suspect]
     Active Substance: METHYLPREDNISOLONE
     Dosage: 1 GRAM, ONCE A DAY,TWO SEPARATE PULSES
     Route: 042
  7. VALPROATE SODIUM [Suspect]
     Active Substance: VALPROATE SODIUM
     Indication: Status epilepticus
     Route: 065
  8. PHENYTOIN [Suspect]
     Active Substance: PHENYTOIN
     Indication: Status epilepticus
     Route: 065
  9. TOPIRAMATE [Suspect]
     Active Substance: TOPIRAMATE
     Indication: Status epilepticus
  10. THIOPENTAL [Suspect]
     Active Substance: THIOPENTAL
     Indication: Status epilepticus
     Dosage: 7 MILLIGRAM/KILOGRAM, EVERY HOUR,UP TO 7 MG/KG/HR
     Route: 065
  11. PHENOBARBITAL [Suspect]
     Active Substance: PHENOBARBITAL
     Indication: Status epilepticus
     Route: 065
  12. MIDAZOLAM [Suspect]
     Active Substance: MIDAZOLAM
     Indication: Status epilepticus
     Dosage: 20 MILLIGRAM, EVERY HOUR,UP TO 20MG/HR
     Route: 065
  13. REMIFENTANIL [Suspect]
     Active Substance: REMIFENTANIL
     Indication: Sedation
     Route: 065
  14. PROPOFOL [Suspect]
     Active Substance: PROPOFOL
     Indication: Status epilepticus
     Dosage: 5 MILLIGRAM/KILOGRAM, EVERY HOUR
     Route: 042
  15. PROPOFOL [Suspect]
     Active Substance: PROPOFOL
     Indication: Sedation
  16. KETAMINE [Suspect]
     Active Substance: KETAMINE
     Indication: Status epilepticus
     Dosage: 6 MILLIGRAM/KILOGRAM, EVERY HOUR
     Route: 065
  17. CLONAZEPAM [Suspect]
     Active Substance: CLONAZEPAM
     Indication: Status epilepticus
     Route: 065
  18. CLOBAZAM [Suspect]
     Active Substance: CLOBAZAM
     Indication: Status epilepticus
     Route: 065
  19. LORAZEPAM [Suspect]
     Active Substance: LORAZEPAM
     Indication: Autonomic nervous system imbalance
     Route: 065
  20. FENTANYL [Suspect]
     Active Substance: FENTANYL
     Indication: Sedation
     Route: 042
  21. PERAMPANEL [Suspect]
     Active Substance: PERAMPANEL
     Indication: Status epilepticus
     Dosage: 14 MILLIGRAM, ONCE A DAY,ADDED ON DAY 142 SLOWLY UP-TITRATED
     Route: 065

REACTIONS (14)
  - Cognitive disorder [Not Recovered/Not Resolved]
  - Deep vein thrombosis [Unknown]
  - Anaemia [Unknown]
  - Weight decreased [Unknown]
  - Intensive care unit acquired weakness [Unknown]
  - Haematuria traumatic [Unknown]
  - Liver function test abnormal [Unknown]
  - Fungal infection [Unknown]
  - Infection [Unknown]
  - Muscle contracture [Unknown]
  - Thrombophlebitis [Unknown]
  - Product use in unapproved indication [Unknown]
  - Off label use [Unknown]
  - Intentional product use issue [Unknown]
